FAERS Safety Report 12846797 (Version 8)
Quarter: 2020Q1

REPORT INFORMATION
  Report Type: Spontaneous
  Country: US (occurrence: US)
  Receive Date: 20161014
  Receipt Date: 20200203
  Transmission Date: 20200409
  Serious: No
  Sender: FDA-Public Use
  Company Number: US-PFIZER INC-2016479160

PATIENT
  Age: 11 Year
  Sex: Male
  Weight: 34 kg

DRUGS (9)
  1. GENOTROPIN [Suspect]
     Active Substance: SOMATROPIN
     Indication: COELIAC DISEASE
     Dosage: 1.4 MG, DAILY (X 7DAYS/WEEK)
     Dates: start: 20120425
  2. GENOTROPIN [Suspect]
     Active Substance: SOMATROPIN
     Dosage: 2.4 MG, DAILY( 12MG CARTRIDGE)
  3. GENOTROPIN [Suspect]
     Active Substance: SOMATROPIN
     Dosage: UNK
  4. GENOTROPIN [Suspect]
     Active Substance: SOMATROPIN
     Dosage: GIVE 1.8, ONCE A DAY AT NIGHT AT 9 PM
     Dates: start: 2012
  5. GENOTROPIN [Suspect]
     Active Substance: SOMATROPIN
     Indication: BODY HEIGHT BELOW NORMAL
     Dosage: 1.4 MG, 1X/DAY(AT NIGHT ON HIS LEG OR HIS BUTT)
     Dates: start: 2015
  6. GENOTROPIN [Suspect]
     Active Substance: SOMATROPIN
     Indication: GROWTH HORMONE DEFICIENCY
     Dosage: 1.6 MG, DAILY
     Dates: start: 20141226
  7. GENOTROPIN [Suspect]
     Active Substance: SOMATROPIN
     Dosage: ABOUT HALF OF HIS USUAL DOSE
     Dates: start: 20161121
  8. GENOTROPIN [Suspect]
     Active Substance: SOMATROPIN
     Dosage: 1.6 MG, DAILY
  9. GENOTROPIN [Suspect]
     Active Substance: SOMATROPIN
     Dosage: UNK
     Dates: start: 20150822

REACTIONS (5)
  - Incorrect dose administered [Unknown]
  - Malaise [Unknown]
  - Nausea [Unknown]
  - Wrong technique in device usage process [Recovered/Resolved]
  - Product dose omission [Unknown]

NARRATIVE: CASE EVENT DATE: 20161121
